FAERS Safety Report 9262799 (Version 1)
Quarter: 2013Q2

REPORT INFORMATION
  Report Type: Report from Study
  Country: BR (occurrence: AR)
  Receive Date: 20130430
  Receipt Date: 20130430
  Transmission Date: 20140414
  Serious: Yes (Hospitalization, Other)
  Sender: FDA-Public Use
  Company Number: PHHY2013AR041447

PATIENT
  Sex: Female

DRUGS (3)
  1. DIOVAN [Suspect]
     Indication: HYPERTENSION
     Dosage: 1 DF, (320 MG) A DAY
     Route: 048
  2. DIOVAN [Suspect]
     Indication: CARDIAC DISORDER
  3. LOTRIAL [Suspect]
     Dosage: UNK UKN, UNK

REACTIONS (5)
  - Myocardial infarction [Recovering/Resolving]
  - Chest pain [Recovering/Resolving]
  - Fatigue [Recovering/Resolving]
  - Breast cancer [Recovering/Resolving]
  - Feeling abnormal [Recovering/Resolving]
